FAERS Safety Report 5058454-6 (Version None)
Quarter: 2006Q3

REPORT INFORMATION
  Report Type: 
  Country: None (occurrence: None)
  Receive Date: 20060719
  Receipt Date: 20060710
  Transmission Date: 20061208
  Serious: Yes (Other)
  Sender: FDA-Public Use
  Company Number: CHNY2006JP02089

PATIENT
  Sex: Male

DRUGS (1)
  1. NICOTINELL TTS             (NICOTINE) [Suspect]
     Indication: SMOKING CESSATION THERAPY
     Dosage: TRANSDERMAL
     Route: 062

REACTIONS (1)
  - ANGIONEUROTIC OEDEMA [None]
